FAERS Safety Report 12964946 (Version 1)
Quarter: 2016Q4

REPORT INFORMATION
  Report Type: Spontaneous
  Country: US (occurrence: US)
  Receive Date: 20161122
  Receipt Date: 20161122
  Transmission Date: 20170207
  Serious: No
  Sender: FDA-Public Use
  Company Number: US-ALLERGAN-1674068US

PATIENT
  Sex: Female

DRUGS (2)
  1. KYBELLA [Suspect]
     Active Substance: DEOXYCHOLIC ACID
     Dosage: UNK
     Route: 058
     Dates: start: 201604, end: 201604
  2. KYBELLA [Suspect]
     Active Substance: DEOXYCHOLIC ACID
     Indication: NECK PLASTIC SURGERY
     Dosage: UNK
     Route: 058
     Dates: start: 20160219, end: 20160219

REACTIONS (7)
  - Injection site erythema [Not Recovered/Not Resolved]
  - Neck deformity [Not Recovered/Not Resolved]
  - Swelling [Not Recovered/Not Resolved]
  - Wrong technique in product usage process [Unknown]
  - Off label use [Unknown]
  - Skin wrinkling [Not Recovered/Not Resolved]
  - Injection site pain [Not Recovered/Not Resolved]
